FAERS Safety Report 5159540-2 (Version None)
Quarter: 2006Q4

REPORT INFORMATION
  Report Type: 
  Country: None (occurrence: None)
  Receive Date: 20061120
  Receipt Date: 20061103
  Transmission Date: 20070319
  Serious: Yes (Death)
  Sender: FDA-Public Use
  Company Number: 200611IM000622

PATIENT

DRUGS (2)
  1. ACTIMMUNE [Suspect]
     Indication: IDIOPATHIC PULMONARY FIBROSIS
     Dosage: 200 UG, TIW, SUBCUTANEOUS
     Route: 058
  2. PREDNISONE TAB [Suspect]
     Indication: IDIOPATHIC PULMONARY FIBROSIS
     Dosage: 10 MG, ORAL
     Route: 048

REACTIONS (2)
  - CONDITION AGGRAVATED [None]
  - IDIOPATHIC PULMONARY FIBROSIS [None]
